FAERS Safety Report 21097573 (Version 2)
Quarter: 2022Q3

REPORT INFORMATION
  Report Type: Spontaneous
  Country: BR (occurrence: BR)
  Receive Date: 20220719
  Receipt Date: 20220902
  Transmission Date: 20221027
  Serious: Yes (Other)
  Sender: FDA-Public Use
  Company Number: BR-NOVARTISPH-NVSC2022BR162352

PATIENT
  Age: 58 Year
  Sex: Male
  Weight: 72 kg

DRUGS (2)
  1. BRINZOLAMIDE\TIMOLOL MALEATE [Suspect]
     Active Substance: BRINZOLAMIDE\TIMOLOL MALEATE
     Indication: Product used for unknown indication
     Dosage: 5 ML
     Route: 065
  2. BRINZOLAMIDE\TIMOLOL MALEATE [Suspect]
     Active Substance: BRINZOLAMIDE\TIMOLOL MALEATE
     Dosage: 1 DRP ONLY ONE DAY
     Dates: start: 20220713, end: 20220713

REACTIONS (3)
  - Intentional product misuse [Recovered/Resolved]
  - Eye irritation [Recovered/Resolved]
  - Product physical issue [Unknown]

NARRATIVE: CASE EVENT DATE: 20220713
